FAERS Safety Report 12530455 (Version 1)
Quarter: 2016Q3

REPORT INFORMATION
  Report Type: Spontaneous
  Country: US (occurrence: None)
  Receive Date: 20160705
  Receipt Date: 20160705
  Transmission Date: 20161109
  Serious: Yes (Hospitalization, Other)
  Sender: FDA-Public Use
  Company Number: None

PATIENT
  Age: 63 Year
  Sex: Female
  Weight: 127.01 kg

DRUGS (27)
  1. LYRICA [Suspect]
     Active Substance: PREGABALIN
     Indication: FIBROMYALGIA
     Route: 048
     Dates: start: 20150603, end: 20150612
  2. LOSARTAN. [Concomitant]
     Active Substance: LOSARTAN
  3. PROAIR HFA [Concomitant]
     Active Substance: ALBUTEROL SULFATE
  4. COLLAGEN SUPPORT [Concomitant]
  5. FEXAFENADINE [Concomitant]
  6. VERAPAMIL [Concomitant]
     Active Substance: VERAPAMIL HYDROCHLORIDE
  7. AMLODIPINE [Concomitant]
     Active Substance: AMLODIPINE BESYLATE
  8. ONE-DAY-WITH IRON [Concomitant]
  9. SUDAFED [Concomitant]
     Active Substance: PSEUDOEPHEDRINE HYDROCHLORIDE
  10. POTASSIUM [Concomitant]
     Active Substance: POTASSIUM
  11. DYMISTA (NASAL SPRAY) [Concomitant]
  12. PRAMIPEXOLE. [Concomitant]
     Active Substance: PRAMIPEXOLE
  13. MONTELUKAST [Concomitant]
     Active Substance: MONTELUKAST SODIUM
  14. LEVITHYROXINE [Concomitant]
  15. VITAMIN B12 [Concomitant]
     Active Substance: CYANOCOBALAMIN
  16. LASIX [Concomitant]
     Active Substance: FUROSEMIDE
  17. CLINORIL [Concomitant]
     Active Substance: SULINDAC
  18. PANTOPRAZOLE [Concomitant]
     Active Substance: PANTOPRAZOLE SODIUM
  19. TEA [Concomitant]
     Active Substance: TEA LEAF
  20. PROMETHAZINE [Concomitant]
     Active Substance: PROMETHAZINE\PROMETHAZINE HYDROCHLORIDE
  21. MECLIZINE [Concomitant]
     Active Substance: MECLIZINE HYDROCHLORIDE
  22. DULOXETINE. [Concomitant]
     Active Substance: DULOXETINE
  23. IPRATROPIUM BROMIDE (NASAL SPRAY) [Concomitant]
  24. DULERA [Concomitant]
     Active Substance: FORMOTEROL FUMARATE DIHYDRATE\MOMETASONE FUROATE
  25. VITAMIN D [Concomitant]
     Active Substance: CHOLECALCIFEROL
  26. BLACK COHOSH [Concomitant]
     Active Substance: BLACK COHOSH
  27. RESMED [Concomitant]

REACTIONS (3)
  - Nocturia [None]
  - Cardiac failure congestive [None]
  - Micturition urgency [None]

NARRATIVE: CASE EVENT DATE: 20150612
